FAERS Safety Report 13167885 (Version 2)
Quarter: 2017Q1

REPORT INFORMATION
  Report Type: Spontaneous
  Country: JP (occurrence: JP)
  Receive Date: 20170131
  Receipt Date: 20170208
  Transmission Date: 20170428
  Serious: Yes (Other)
  Sender: FDA-Public Use
  Company Number: JP-PFIZER INC-2017039125

PATIENT
  Age: 66 Year
  Sex: Male
  Weight: 56 kg

DRUGS (34)
  1. ELPLAT [Suspect]
     Active Substance: OXALIPLATIN
     Dosage: 100 MG, ONCE A DAY
     Route: 041
     Dates: start: 20150219, end: 20150219
  2. LEVOFOLINATE [Suspect]
     Active Substance: LEVOLEUCOVORIN CALCIUM
     Dosage: 300 MG, ONCE A DAY
     Route: 041
     Dates: start: 20150326, end: 20150326
  3. LEVOFOLINATE [Suspect]
     Active Substance: LEVOLEUCOVORIN CALCIUM
     Dosage: 300 MG, ONCE A DAY
     Route: 041
     Dates: start: 20150423, end: 20150423
  4. CAMPTO [Suspect]
     Active Substance: IRINOTECAN
     Dosage: 200 MG, ONCE A DAY
     Route: 041
     Dates: start: 20141204, end: 20141204
  5. LEVOFOLINATE [Suspect]
     Active Substance: LEVOLEUCOVORIN CALCIUM
     Indication: PANCREATIC CARCINOMA
     Dosage: 320 MG, ONCE A DAY
     Route: 041
     Dates: start: 20141113, end: 20141113
  6. ELPLAT [Suspect]
     Active Substance: OXALIPLATIN
     Dosage: 135 MG, ONCE A DAY
     Route: 041
     Dates: start: 20150205, end: 20150205
  7. LEVOFOLINATE [Suspect]
     Active Substance: LEVOLEUCOVORIN CALCIUM
     Dosage: 316.6 MG, ONCE A DAY
     Route: 041
     Dates: start: 20141204, end: 20141204
  8. LEVOFOLINATE [Suspect]
     Active Substance: LEVOLEUCOVORIN CALCIUM
     Dosage: 316.6 MG, ONCE A DAY
     Route: 041
     Dates: start: 20150205, end: 20150205
  9. LEVOFOLINATE [Suspect]
     Active Substance: LEVOLEUCOVORIN CALCIUM
     Dosage: 300 MG, ONCE A DAY
     Route: 041
     Dates: start: 20150219, end: 20150219
  10. CAMPTO [Suspect]
     Active Substance: IRINOTECAN
     Dosage: 200 MG, ONCE A DAY
     Route: 041
     Dates: start: 20150122, end: 20150122
  11. CAMPTO [Suspect]
     Active Substance: IRINOTECAN
     Dosage: 200 MG, ONCE A DAY
     Route: 041
     Dates: start: 20150312, end: 20150312
  12. CAMPTO [Suspect]
     Active Substance: IRINOTECAN
     Dosage: 200 MG, ONCE A DAY
     Route: 041
     Dates: start: 20150409, end: 20150409
  13. CAMPTO [Suspect]
     Active Substance: IRINOTECAN
     Dosage: 200 MG, ONCE A DAY
     Route: 041
     Dates: start: 20150423, end: 20150423
  14. CAMPTO [Suspect]
     Active Substance: IRINOTECAN
     Dosage: 200 MG, ONCE A DAY
     Route: 041
     Dates: start: 20150507, end: 20150507
  15. ELPLAT [Suspect]
     Active Substance: OXALIPLATIN
     Dosage: 135 MG, ONCE A DAY
     Route: 041
     Dates: start: 20150122, end: 20150122
  16. ELPLAT [Suspect]
     Active Substance: OXALIPLATIN
     Dosage: 100 MG, ONCE A DAY
     Route: 041
     Dates: start: 20150326, end: 20150326
  17. LEVOFOLINATE [Suspect]
     Active Substance: LEVOLEUCOVORIN CALCIUM
     Dosage: 316.6 MG, ONCE A DAY
     Route: 041
     Dates: start: 20141225, end: 20141225
  18. CAMPTO [Suspect]
     Active Substance: IRINOTECAN
     Dosage: 200 MG, ONCE A DAY
     Route: 041
     Dates: start: 20150205, end: 20150205
  19. CAMPTO [Suspect]
     Active Substance: IRINOTECAN
     Dosage: 200 MG, ONCE A DAY
     Route: 041
     Dates: start: 20150219, end: 20150219
  20. ELPLAT [Suspect]
     Active Substance: OXALIPLATIN
     Dosage: 135 MG, ONCE A DAY
     Route: 041
     Dates: start: 20141225, end: 20141225
  21. LEVOFOLINATE [Suspect]
     Active Substance: LEVOLEUCOVORIN CALCIUM
     Dosage: 300 MG, ONCE A DAY
     Route: 041
     Dates: start: 20150409, end: 20150409
  22. CAMPTO [Suspect]
     Active Substance: IRINOTECAN
     Dosage: 200 MG, ONCE A DAY
     Route: 041
     Dates: start: 20150326, end: 20150326
  23. ELPLAT [Suspect]
     Active Substance: OXALIPLATIN
     Dosage: 135 MG, ONCE A DAY
     Route: 041
     Dates: start: 20141204, end: 20141204
  24. LEVOFOLINATE [Suspect]
     Active Substance: LEVOLEUCOVORIN CALCIUM
     Dosage: 316.6 MG, ONCE A DAY
     Route: 041
     Dates: start: 20150122, end: 20150122
  25. ELPLAT [Suspect]
     Active Substance: OXALIPLATIN
     Dosage: 100 MG, ONCE A DAY
     Route: 041
     Dates: start: 20150312, end: 20150312
  26. ELPLAT [Suspect]
     Active Substance: OXALIPLATIN
     Dosage: 100 MG, ONCE A DAY
     Route: 041
     Dates: start: 20150409, end: 20150409
  27. ELPLAT [Suspect]
     Active Substance: OXALIPLATIN
     Dosage: 100 MG, ONCE A DAY
     Route: 041
     Dates: start: 20150507, end: 20150507
  28. 5-FU [Concomitant]
     Active Substance: FLUOROURACIL
     Dosage: UNK
     Dates: start: 20141113, end: 20150507
  29. ELPLAT [Suspect]
     Active Substance: OXALIPLATIN
     Indication: PANCREATIC CARCINOMA
     Dosage: 135 MG, ONCE A DAY
     Route: 041
     Dates: start: 20141113, end: 20141113
  30. ELPLAT [Suspect]
     Active Substance: OXALIPLATIN
     Dosage: 100 MG, ONCE A DAY
     Route: 041
     Dates: start: 20150423, end: 20150423
  31. LEVOFOLINATE [Suspect]
     Active Substance: LEVOLEUCOVORIN CALCIUM
     Dosage: 300 MG, ONCE A DAY
     Route: 041
     Dates: start: 20150312, end: 20150312
  32. LEVOFOLINATE [Suspect]
     Active Substance: LEVOLEUCOVORIN CALCIUM
     Dosage: 300 MG, ONCE A DAY
     Route: 041
     Dates: start: 20150507, end: 20150507
  33. CAMPTO [Suspect]
     Active Substance: IRINOTECAN
     Indication: PANCREATIC CARCINOMA
     Dosage: 240 MG, ONCE A DAY
     Route: 041
     Dates: start: 20141113, end: 20141113
  34. CAMPTO [Suspect]
     Active Substance: IRINOTECAN
     Dosage: 200 MG, ONCE A DAY
     Route: 041
     Dates: start: 20141225, end: 20141225

REACTIONS (14)
  - Decreased appetite [Unknown]
  - Hypokalaemia [Unknown]
  - Aspartate aminotransferase increased [Unknown]
  - Influenza [Unknown]
  - Neutrophil count decreased [Unknown]
  - Nausea [Unknown]
  - Haemoglobin decreased [Unknown]
  - Weight decreased [Unknown]
  - Peripheral sensory neuropathy [Unknown]
  - Vomiting [Unknown]
  - Fatigue [Unknown]
  - White blood cell count decreased [Unknown]
  - Neoplasm progression [Unknown]
  - Diarrhoea [Unknown]
